FAERS Safety Report 24152967 (Version 1)
Quarter: 2024Q3

REPORT INFORMATION
  Report Type: Spontaneous
  Country: FR (occurrence: FR)
  Receive Date: 20240730
  Receipt Date: 20240730
  Transmission Date: 20241017
  Serious: Yes (Other)
  Sender: BAYER
  Company Number: FR-BAYER-2024A100453

PATIENT
  Age: 34 Year
  Sex: Female
  Weight: 67 kg

DRUGS (1)
  1. KYLEENA [Suspect]
     Active Substance: LEVONORGESTREL
     Indication: Contraception
     Dosage: 17.5?G/DAY
     Route: 015
     Dates: start: 20240329, end: 20240707

REACTIONS (7)
  - Ectopic pregnancy with contraceptive device [Recovered/Resolved]
  - Ruptured ectopic pregnancy [Recovered/Resolved]
  - Haemoperitoneum [None]
  - Haemorrhage in pregnancy [None]
  - Pelvic infection [None]
  - Abdominal pain lower [None]
  - Drug ineffective [None]

NARRATIVE: CASE EVENT DATE: 20240707
